FAERS Safety Report 14674160 (Version 1)
Quarter: 2018Q1

REPORT INFORMATION
  Report Type: Spontaneous
  Country: US (occurrence: US)
  Receive Date: 20180323
  Receipt Date: 20180323
  Transmission Date: 20180509
  Serious: No
  Sender: FDA-Public Use
  Company Number: US-PERRIGO-17US025829

PATIENT
  Age: 78 Year
  Sex: Female

DRUGS (2)
  1. ACETAMINOPHEN. [Suspect]
     Active Substance: ACETAMINOPHEN
     Dosage: 650 TO 1300 MG, TID
     Route: 048
     Dates: start: 20170726
  2. ACETAMINOPHEN. [Suspect]
     Active Substance: ACETAMINOPHEN
     Indication: PAIN
     Dosage: 650 TO 1300 MG, TID
     Route: 048

REACTIONS (7)
  - Blood pressure fluctuation [Recovered/Resolved]
  - Incorrect drug administration duration [Unknown]
  - Underdose [Unknown]
  - Chest discomfort [Unknown]
  - Tremor [Unknown]
  - Palpitations [Unknown]
  - Secretion discharge [Unknown]

NARRATIVE: CASE EVENT DATE: 20170802
